FAERS Safety Report 9682432 (Version 3)
Quarter: 2014Q1

REPORT INFORMATION
  Report Type: Report from Study
  Country: CA (occurrence: CA)
  Receive Date: 20131112
  Receipt Date: 20140311
  Transmission Date: 20141002
  Serious: Yes (Other)
  Sender: FDA-Public Use
  Company Number: CA-ROCHE-1299268

PATIENT
  Age: 48 Year
  Sex: Female
  Weight: 97.1 kg

DRUGS (13)
  1. RITUXAN [Suspect]
     Indication: RHEUMATOID ARTHRITIS
     Dosage: FREQUENCY : DAY 1 AND DAY 15.
     Route: 042
     Dates: start: 20091022
  2. RITUXAN [Suspect]
     Route: 042
     Dates: start: 20130723
  3. DIPHENHYDRAMINE HCL [Concomitant]
     Indication: PREMEDICATION
     Route: 048
     Dates: start: 20091105
  4. ACETAMINOPHEN [Concomitant]
     Indication: PREMEDICATION
     Route: 048
     Dates: start: 20091105
  5. CELEBREX [Concomitant]
  6. SULFASALAZINE [Concomitant]
  7. OXYCODONE [Concomitant]
  8. HYDROCHLOROTHIAZIDE [Concomitant]
  9. RAMIPRIL [Concomitant]
  10. TRAZODONE [Concomitant]
  11. OXYCONTIN [Concomitant]
  12. PREDNISONE [Concomitant]
     Route: 065
  13. METHYLPREDNISOLONE [Concomitant]
     Route: 042
     Dates: start: 20091105

REACTIONS (8)
  - Back disorder [Not Recovered/Not Resolved]
  - Morton^s neuralgia [Not Recovered/Not Resolved]
  - Intervertebral disc degeneration [Unknown]
  - Depression [Unknown]
  - Sinusitis [Not Recovered/Not Resolved]
  - Infection [Unknown]
  - Rheumatoid arthritis [Not Recovered/Not Resolved]
  - Weight increased [Not Recovered/Not Resolved]
